FAERS Safety Report 13071966 (Version 1)
Quarter: 2016Q4

REPORT INFORMATION
  Report Type: Spontaneous
  Country: US (occurrence: US)
  Receive Date: 20161229
  Receipt Date: 20161229
  Transmission Date: 20170207
  Serious: No
  Sender: FDA-Public Use
  Company Number: US-JNJFOC-20161002112

PATIENT
  Sex: Female

DRUGS (2)
  1. STELARA [Suspect]
     Active Substance: USTEKINUMAB
     Indication: PSORIASIS
     Route: 058
  2. COSENTYX [Concomitant]
     Active Substance: SECUKINUMAB
     Route: 065

REACTIONS (8)
  - Pain in extremity [Unknown]
  - Diarrhoea [Recovering/Resolving]
  - Drug effect decreased [Unknown]
  - Nausea [Recovering/Resolving]
  - Depression [Unknown]
  - Psoriasis [Not Recovered/Not Resolved]
  - Gait disturbance [Unknown]
  - Arthralgia [Unknown]
